FAERS Safety Report 7346891-6 (Version None)
Quarter: 2011Q1

REPORT INFORMATION
  Report Type: 
  Country: None (occurrence: None)
  Receive Date: 20110311
  Receipt Date: 20110302
  Transmission Date: 20110831
  Serious: Yes (Death, Other)
  Sender: FDA-Public Use
  Company Number: JP-JNJFOC-20110107376

PATIENT
  Sex: Female
  Weight: 55 kg

DRUGS (11)
  1. HIRNAMINE [Concomitant]
     Indication: SCHIZOPHRENIA
     Route: 048
  2. RISPERDAL CONSTA [Suspect]
     Route: 030
  3. MYSLEE [Concomitant]
     Indication: SCHIZOPHRENIA
     Route: 048
  4. CONTOMIN [Concomitant]
     Indication: SCHIZOPHRENIA
     Route: 048
  5. RISPERDAL CONSTA [Suspect]
     Indication: SCHIZOPHRENIA
     Route: 030
  6. VEGETAMIN-A [Concomitant]
     Indication: SCHIZOPHRENIA
     Route: 048
  7. RISPERDAL CONSTA [Suspect]
     Route: 030
  8. FLUNITRAZEPAM [Concomitant]
     Indication: SCHIZOPHRENIA
     Route: 048
  9. MAGLAX [Concomitant]
     Indication: CONSTIPATION
     Route: 048
  10. ALOSENN [Concomitant]
     Indication: SCHIZOPHRENIA
     Route: 048
  11. PURSENNID [Concomitant]
     Indication: SCHIZOPHRENIA
     Route: 048

REACTIONS (2)
  - CARDIAC FAILURE ACUTE [None]
  - CONSTIPATION [None]
